FAERS Safety Report 8887943 (Version 1)
Quarter: 2012Q4

REPORT INFORMATION
  Report Type: Spontaneous
  Country: US (occurrence: None)
  Receive Date: 20121101
  Receipt Date: 20121101
  Transmission Date: 20130627
  Serious: No
  Sender: FDA-Public Use
  Company Number: None

PATIENT
  Age: 49 Year
  Sex: Male
  Weight: 119.1 kg

DRUGS (1)
  1. AMOXICILLIN/CLAVULANATE POTASSIUM [Suspect]
     Indication: UPPER RESPIRATORY TRACT INFECTION
     Dosage: MG BID PO
     Route: 048
     Dates: start: 20120802, end: 20120802

REACTIONS (6)
  - Rash [None]
  - Hypersensitivity [None]
  - Swollen tongue [None]
  - Lip swelling [None]
  - Dyspnoea [None]
  - Refusal of treatment by patient [None]
